FAERS Safety Report 9423612 (Version 1)
Quarter: 2013Q3

REPORT INFORMATION
  Report Type: Spontaneous
  Country: FR (occurrence: FR)
  Receive Date: 20130726
  Receipt Date: 20130726
  Transmission Date: 20140515
  Serious: Yes (Life-Threatening, Hospitalization)
  Sender: FDA-Public Use
  Company Number: FR-ASTRAZENECA-2013SE56703

PATIENT
  Age: 24627 Day
  Sex: Female
  Weight: 64 kg

DRUGS (20)
  1. INEXIUM [Suspect]
     Route: 048
     Dates: start: 20130423
  2. PREVISCAN [Suspect]
     Indication: THROMBOSIS PROPHYLAXIS
     Route: 048
     Dates: start: 20130503, end: 20130617
  3. LEVOTHYROX [Concomitant]
  4. CHONDROSULF [Concomitant]
     Dosage: LONG LASTING TREATMENT
  5. OROCAL [Concomitant]
     Dosage: LONG LASTING TREATMENT
  6. UVEDOSE [Concomitant]
     Dosage: LONG LASTING TREATMENT
  7. LANZOR [Concomitant]
     Dosage: LONG LASTING TREATMENT
  8. PERINDOPRIL [Concomitant]
     Dates: start: 201303
  9. ATENOLOL [Concomitant]
     Dates: start: 201303
  10. BACTROBAN [Concomitant]
     Dates: start: 201303
  11. HEPARINE [Concomitant]
     Dates: end: 20130506
  12. SECTRAL [Concomitant]
  13. LASILIX FAIBLE [Concomitant]
  14. TARDYFERON B9 [Concomitant]
  15. DOLIPRANE [Concomitant]
     Dosage: IF REQUIRED
  16. DAFALGAN [Concomitant]
  17. DIFFU K [Concomitant]
  18. DIPROSONE [Concomitant]
     Dates: start: 20130620
  19. LOCOID [Concomitant]
     Dates: start: 20130620
  20. LOVENOX [Concomitant]
     Dates: start: 201306

REACTIONS (6)
  - Drug reaction with eosinophilia and systemic symptoms [Recovered/Resolved]
  - Epstein-Barr virus test positive [Unknown]
  - Eosinophilia [Recovering/Resolving]
  - Toxic skin eruption [Unknown]
  - Dermatitis exfoliative [Recovering/Resolving]
  - Neutropenia [Recovered/Resolved]
